FAERS Safety Report 4978415-2 (Version None)
Quarter: 2006Q2

REPORT INFORMATION
  Report Type: 
  Country: None (occurrence: None)
  Receive Date: 20060417
  Receipt Date: 20060331
  Transmission Date: 20061013
  Serious: Yes (Other)
  Sender: FDA-Public Use
  Company Number: DSA_27966_2006

PATIENT
  Age: 50 Year
  Sex: Female
  Weight: 78 kg

DRUGS (2)
  1. LORAX [Suspect]
     Indication: ANXIETY
     Dosage: 2 MG Q DAY PO
     Route: 048
     Dates: start: 19860101, end: 20060325
  2. LORAX [Suspect]
     Indication: ANXIETY
     Dosage: 2 MG Q DAY PO
     Route: 048
     Dates: start: 20060330

REACTIONS (4)
  - BLOOD PRESSURE INCREASED [None]
  - DRUG WITHDRAWAL SYNDROME [None]
  - INSOMNIA [None]
  - MALAISE [None]
